FAERS Safety Report 14705461 (Version 1)
Quarter: 2018Q2

REPORT INFORMATION
  Report Type: Spontaneous
  Country: US (occurrence: US)
  Receive Date: 20180402
  Receipt Date: 20180402
  Transmission Date: 20180711
  Serious: No
  Sender: FDA-Public Use
  Company Number: US-TEVA-2018-US-875970

PATIENT
  Sex: Female

DRUGS (1)
  1. ANTIBONT-A (BACITRACIN\NEOMYCIN\POLYMYXIN) [Suspect]
     Active Substance: BACITRACIN\NEOMYCIN\POLYMYXIN
     Indication: INFECTION PROPHYLAXIS
     Route: 065

REACTIONS (1)
  - Drug prescribing error [Unknown]

NARRATIVE: CASE EVENT DATE: 20180323
